FAERS Safety Report 12285930 (Version 8)
Quarter: 2017Q1

REPORT INFORMATION
  Report Type: Spontaneous
  Country: IE (occurrence: IE)
  Receive Date: 20160420
  Receipt Date: 20170113
  Transmission Date: 20170428
  Serious: Yes (Death, Hospitalization, Other)
  Sender: FDA-Public Use
  Company Number: IE-009507513-1604IRL011222

PATIENT
  Age: 63 Year
  Sex: Female

DRUGS (11)
  1. DIAZEPAM. [Concomitant]
     Active Substance: DIAZEPAM
     Dosage: 5 MG, REDUCING DOSE
     Dates: start: 20140712, end: 20140818
  2. ZISPIN [Suspect]
     Active Substance: MIRTAZAPINE
     Dosage: 15 MG, UNKNOWN
     Route: 065
     Dates: start: 20140712, end: 20140902
  3. SERTRALINE HYDROCHLORIDE. [Suspect]
     Active Substance: SERTRALINE HYDROCHLORIDE
     Dosage: 100 MG
     Dates: start: 20140717, end: 20140902
  4. SUDAFED [Concomitant]
     Active Substance: PSEUDOEPHEDRINE HYDROCHLORIDE
  5. TEMAZEPAM. [Concomitant]
     Active Substance: TEMAZEPAM
     Dosage: 20 MG
  6. ZISPIN [Suspect]
     Active Substance: MIRTAZAPINE
     Dosage: TOTAL DAILY DOSE 30 MG
     Route: 065
     Dates: start: 20140903
  7. LEXAPRO [Suspect]
     Active Substance: ESCITALOPRAM OXALATE
     Indication: DEPRESSION
     Dosage: UNK
     Dates: start: 201402, end: 201407
  8. SERTRALINE HYDROCHLORIDE. [Suspect]
     Active Substance: SERTRALINE HYDROCHLORIDE
     Dosage: 100 MG
     Dates: end: 20140714
  9. SERTRALINE HYDROCHLORIDE. [Suspect]
     Active Substance: SERTRALINE HYDROCHLORIDE
     Dosage: 50 MG
     Dates: start: 20140903, end: 20140908
  10. DIAZEPAM. [Concomitant]
     Active Substance: DIAZEPAM
     Dosage: 2 MG
     Dates: start: 20140903
  11. SOLPADEINE [Concomitant]
     Dosage: PARACETAMOL 500MG, COD 500/30/8 MILLIGRAM

REACTIONS (18)
  - Fall [Unknown]
  - Blood test abnormal [Unknown]
  - Panic reaction [Unknown]
  - Negative thoughts [Unknown]
  - Completed suicide [Fatal]
  - Contusion [Unknown]
  - Electrocardiogram ST segment elevation [Unknown]
  - Fall [Unknown]
  - Hyponatraemia [Unknown]
  - Head injury [Unknown]
  - Haemorrhage [Unknown]
  - Electrocardiogram abnormal [Unknown]
  - Fear of death [Unknown]
  - Altered state of consciousness [Unknown]
  - Withdrawal syndrome [Fatal]
  - Hepatic enzyme abnormal [Unknown]
  - Coagulopathy [Unknown]
  - Fear [Unknown]

NARRATIVE: CASE EVENT DATE: 20140829
